FAERS Safety Report 18403175 (Version 1)
Quarter: 2020Q4

REPORT INFORMATION
  Report Type: Other
  Country: US (occurrence: US)
  Receive Date: 20201019
  Receipt Date: 20201019
  Transmission Date: 20210114
  Serious: Yes (Other)
  Sender: FDA-Public Use
  Company Number: US-ROCHE-2697019

PATIENT
  Age: 66 Year
  Sex: Female

DRUGS (9)
  1. DECITABINE. [Concomitant]
     Active Substance: DECITABINE
  2. VENETOCLAX. [Concomitant]
     Active Substance: VENETOCLAX
  3. RITUXIMAB. [Suspect]
     Active Substance: RITUXIMAB
     Indication: CHRONIC LYMPHOCYTIC LEUKAEMIA
     Dosage: 5 CYCLES
     Route: 065
  4. VALPROATE [Concomitant]
     Active Substance: VALPROIC ACID
  5. FLUDARABINE [Suspect]
     Active Substance: FLUDARABINE PHOSPHATE
     Indication: CHRONIC LYMPHOCYTIC LEUKAEMIA
     Dosage: 5 CYCLES
     Route: 065
  6. FLUDARABINE [Suspect]
     Active Substance: FLUDARABINE PHOSPHATE
     Indication: LYMPHOCYTIC LYMPHOMA
  7. CYCLOPHOSPHAMIDE. [Suspect]
     Active Substance: CYCLOPHOSPHAMIDE
     Indication: LYMPHOCYTIC LYMPHOMA
  8. RITUXIMAB. [Suspect]
     Active Substance: RITUXIMAB
     Indication: LYMPHOCYTIC LYMPHOMA
  9. CYCLOPHOSPHAMIDE. [Suspect]
     Active Substance: CYCLOPHOSPHAMIDE
     Indication: CHRONIC LYMPHOCYTIC LEUKAEMIA
     Dosage: 5 CYCLES
     Route: 065

REACTIONS (1)
  - Richter^s syndrome [Recovered/Resolved]
